FAERS Safety Report 8332889-8 (Version None)
Quarter: 2012Q2

REPORT INFORMATION
  Report Type: 
  Country: None (occurrence: None)
  Receive Date: 20120503
  Receipt Date: 20120425
  Transmission Date: 20120825
  Serious: Yes (Other)
  Sender: FDA-Public Use
  Company Number: GB-UCBSA-053619

PATIENT
  Age: 23 Year
  Sex: Female

DRUGS (8)
  1. FOLIC ACID [Concomitant]
     Dosage: 5 MG / WEEK
     Route: 048
     Dates: start: 20101027, end: 20120315
  2. IBUPROFEN [Concomitant]
     Route: 048
     Dates: start: 20100623
  3. HYDROXYCHLOROQUINE SULFATE [Concomitant]
     Route: 048
     Dates: start: 20100707
  4. METHOTREXATE [Concomitant]
     Route: 048
     Dates: start: 20101027, end: 20120315
  5. ACETAMINOPHEN [Concomitant]
     Route: 048
     Dates: start: 20100707
  6. TRAMADOL HCL [Concomitant]
     Route: 048
     Dates: start: 20110314
  7. LAMOTRIGINE [Concomitant]
     Route: 048
     Dates: start: 20111122
  8. CIMZIA [Suspect]
     Dosage: LOADING DOSE 400 MG OF 2 WEEKS,
     Route: 058
     Dates: start: 20120210, end: 20120210

REACTIONS (2)
  - ABORTION INDUCED [None]
  - MATERNAL EXPOSURE DURING PREGNANCY [None]
